FAERS Safety Report 9971059 (Version 1)
Quarter: 2014Q1

REPORT INFORMATION
  Report Type: Spontaneous
  Country: US (occurrence: None)
  Receive Date: 20140305
  Receipt Date: 20140305
  Transmission Date: 20141002
  Serious: Yes (Disabling)
  Sender: FDA-Public Use
  Company Number: None

PATIENT
  Age: 84 Year
  Sex: Male
  Weight: 74.84 kg

DRUGS (2)
  1. LEVOFLOXACIN 500MG TABLETS WALGREENS [Suspect]
     Indication: LARYNGITIS
     Dosage: 1 PILL DAILY, ONCE DAILY, TAKEN BY MOUTH
     Route: 048
     Dates: start: 20130508, end: 20130511
  2. LEVOFLOXACIN 500MG TABLETS WALGREENS [Suspect]
     Indication: BRONCHITIS
     Dosage: 1 PILL DAILY, ONCE DAILY, TAKEN BY MOUTH
     Route: 048
     Dates: start: 20130508, end: 20130511

REACTIONS (1)
  - Tendon disorder [None]
